FAERS Safety Report 23785667 (Version 1)
Quarter: 2024Q2

REPORT INFORMATION
  Report Type: Spontaneous
  Country: US (occurrence: US)
  Receive Date: 20240425
  Receipt Date: 20240425
  Transmission Date: 20240715
  Serious: No
  Sender: FDA-Public Use
  Company Number: US-BRISTOL-MYERS SQUIBB COMPANY-2024-062514

PATIENT

DRUGS (2)
  1. APIXABAN [Suspect]
     Active Substance: APIXABAN
     Indication: Peripheral vascular disorder
  2. APIXABAN [Suspect]
     Active Substance: APIXABAN
     Indication: Peripheral arterial occlusive disease

REACTIONS (1)
  - Off label use [Unknown]
